FAERS Safety Report 15798346 (Version 5)
Quarter: 2019Q2

REPORT INFORMATION
  Report Type: Spontaneous
  Country: GB (occurrence: GB)
  Receive Date: 20190108
  Receipt Date: 20190628
  Transmission Date: 20190711
  Serious: Yes (Hospitalization)
  Sender: FDA-Public Use
  Company Number: GB-SA-2019SA003212

PATIENT
  Sex: Female

DRUGS (6)
  1. CLEXANE [Suspect]
     Active Substance: ENOXAPARIN SODIUM
     Indication: PORTAL VEIN THROMBOSIS
     Dosage: 60 MG, UNK
     Route: 065
     Dates: start: 201807, end: 20190124
  2. VITAMIN C [Concomitant]
     Active Substance: ASCORBIC ACID
     Dosage: UNK
     Route: 065
  3. VITAMIN K [VITAMIN K NOS] [Concomitant]
     Route: 065
  4. WARFARIN SODIUM. [Suspect]
     Active Substance: WARFARIN SODIUM
     Dosage: UNK, UNK
     Route: 065
  5. WARFARIN SODIUM. [Suspect]
     Active Substance: WARFARIN SODIUM
     Dosage: 5 MG
     Route: 065
  6. FORTISIP [Concomitant]
     Active Substance: CARBOHYDRATES\FATTY ACIDS\MINERALS\PROTEIN\VITAMINS
     Dosage: UNK
     Route: 065

REACTIONS (16)
  - Movement disorder [Unknown]
  - Diarrhoea [Recovering/Resolving]
  - Anxiety [Unknown]
  - Thrombosis [Unknown]
  - Weight increased [Unknown]
  - Malaise [Unknown]
  - Syncope [Unknown]
  - Sepsis [Unknown]
  - Administration site bruise [Recovered/Resolved]
  - Administration site pain [Unknown]
  - Injection site haemorrhage [Unknown]
  - Portal vein occlusion [Unknown]
  - Injection site mass [Recovering/Resolving]
  - Alopecia [Recovering/Resolving]
  - Injection site pain [Unknown]
  - Incorrect dose administered [Unknown]

NARRATIVE: CASE EVENT DATE: 201806
